FAERS Safety Report 14558620 (Version 2)
Quarter: 2018Q2

REPORT INFORMATION
  Report Type: Other
  Country: DE (occurrence: DE)
  Receive Date: 20180221
  Receipt Date: 20180514
  Transmission Date: 20180711
  Serious: Yes (Death, Other)
  Sender: FDA-Public Use
  Company Number: DE-GLENMARK PHARMACEUTICALS-2018GMK032334

PATIENT

DRUGS (6)
  1. BENDAMUSTINE [Suspect]
     Active Substance: BENDAMUSTINE
     Dosage: UNK; CYCLICAL
     Route: 042
     Dates: start: 20161228, end: 20170412
  2. RITUXIMAB. [Suspect]
     Active Substance: RITUXIMAB
     Dosage: UNK
  3. RITUXIMAB. [Suspect]
     Active Substance: RITUXIMAB
     Dosage: UNK
     Route: 042
     Dates: start: 20161227, end: 20170418
  4. RITUXIMAB. [Suspect]
     Active Substance: RITUXIMAB
     Indication: NON-HODGKIN^S LYMPHOMA
     Dosage: UNK
     Route: 042
  5. BENDAMUSTINE [Suspect]
     Active Substance: BENDAMUSTINE
     Indication: NON-HODGKIN^S LYMPHOMA
     Dosage: UNK; CYCLICAL
     Route: 042
  6. BENDAMUSTINE [Suspect]
     Active Substance: BENDAMUSTINE
     Dosage: UNK
     Route: 042
     Dates: start: 20170419, end: 20170420

REACTIONS (9)
  - Acute kidney injury [Fatal]
  - Disseminated intravascular coagulation [Fatal]
  - Lactic acidosis [Fatal]
  - Pneumonia cytomegaloviral [Fatal]
  - Septic shock [Fatal]
  - Multiple organ dysfunction syndrome [Fatal]
  - Acute respiratory distress syndrome [Fatal]
  - Pneumocystis jirovecii pneumonia [Fatal]
  - Alveolitis [Unknown]

NARRATIVE: CASE EVENT DATE: 20170424
